FAERS Safety Report 4571200-5 (Version None)
Quarter: 2005Q1

REPORT INFORMATION
  Report Type: 
  Country: None (occurrence: None)
  Receive Date: 20050202
  Receipt Date: 20050114
  Transmission Date: 20050727
  Serious: Yes (Other)
  Sender: FDA-Public Use
  Company Number: BRO-008294

PATIENT
  Age: 82 Year
  Sex: Male

DRUGS (4)
  1. IOPAMIRO-300 (BATCH # (S): [Suspect]
     Indication: ANGIOGRAM
     Dosage: 200 ML, IA
     Route: 014
  2. IOPAMIRO-300 (BATCH # (S): [Suspect]
     Indication: CAROTID ARTERY STENOSIS
     Dosage: 200 ML, IA
     Route: 014
  3. ACETYLCYSTEINE [Concomitant]
  4. IV HYDRATION [Concomitant]

REACTIONS (4)
  - CEREBRAL ARTERY OCCLUSION [None]
  - CONTRAST MEDIA REACTION [None]
  - NEPHROPATHY [None]
  - OLIGURIA [None]
